FAERS Safety Report 5752064-0 (Version None)
Quarter: 2008Q2

REPORT INFORMATION
  Report Type: 
  Country: None (occurrence: None)
  Receive Date: 20080527
  Receipt Date: 20080509
  Transmission Date: 20081010
  Serious: Yes (Hospitalization)
  Sender: FDA-Public Use
  Company Number: 2008AL004763

PATIENT
  Age: 81 Year
  Sex: Female

DRUGS (4)
  1. DIGOXIN [Suspect]
     Indication: ARRHYTHMIA
     Dosage: 0.25 MG PO
     Route: 048
     Dates: start: 20060101, end: 20080501
  2. LISINOPRIL [Concomitant]
  3. WARFARIN SODIUM [Concomitant]
  4. CHOLESTEROL DRUG (UNKNOWN) [Concomitant]

REACTIONS (2)
  - HEART RATE INCREASED [None]
  - TACHYCARDIA [None]
